FAERS Safety Report 9125836 (Version 2)
Quarter: 2013Q2

REPORT INFORMATION
  Report Type: Report from Study
  Country: FR (occurrence: FR)
  Receive Date: 20130228
  Receipt Date: 20130419
  Transmission Date: 20140414
  Serious: Yes (Hospitalization)
  Sender: FDA-Public Use
  Company Number: FR-009507513-1302FRA011986

PATIENT
  Age: 52 Year
  Sex: Male
  Weight: 72 kg

DRUGS (6)
  1. TEMOZOLOMIDE [Suspect]
     Indication: GLIOMA
     Dosage: 75 MG/M2/D DURING RT
     Dates: start: 20121213, end: 20130130
  2. MEDROL [Concomitant]
     Dosage: 64 MG, UNK
     Route: 048
     Dates: start: 201212
  3. KEPPRA [Concomitant]
     Dosage: 1500 MG
     Route: 048
  4. INEXIUM [Concomitant]
     Dosage: 20 MG, UNK
     Route: 048
  5. DIFFU-K [Concomitant]
     Route: 048
  6. CACIT VITAMINE D3 [Concomitant]
     Route: 048

REACTIONS (3)
  - Memory impairment [Recovered/Resolved]
  - Balance disorder [Recovered/Resolved]
  - Motor dysfunction [Recovered/Resolved]
